FAERS Safety Report 4760983-7 (Version None)
Quarter: 2005Q3

REPORT INFORMATION
  Report Type: 
  Country: None (occurrence: None)
  Receive Date: 20050901
  Receipt Date: 20050824
  Transmission Date: 20060218
  Serious: Yes (Death, Other)
  Sender: FDA-Public Use
  Company Number: 2005-00875

PATIENT
  Age: 81 Year
  Sex: Female
  Weight: 58 kg

DRUGS (2)
  1. INTEGRILIN [Suspect]
     Indication: CORONARY ANGIOPLASTY
     Dosage: SEE IMAGE
     Dates: start: 20050421, end: 20050421
  2. LOVENOX [Concomitant]

REACTIONS (8)
  - ACUTE MYOCARDIAL INFARCTION [None]
  - BLOOD PRESSURE DECREASED [None]
  - BLOOD PRESSURE INCREASED [None]
  - CARDIAC PROCEDURE COMPLICATION [None]
  - CARDIO-RESPIRATORY ARREST [None]
  - CREATININE RENAL CLEARANCE DECREASED [None]
  - INCORRECT DOSE ADMINISTERED [None]
  - RETROPERITONEAL HAEMORRHAGE [None]
